FAERS Safety Report 4947526-X (Version None)
Quarter: 2006Q1

REPORT INFORMATION
  Report Type: 
  Country: None (occurrence: None)
  Receive Date: 20060313
  Receipt Date: 20060302
  Transmission Date: 20060701
  Serious: Yes (Other)
  Sender: FDA-Public Use
  Company Number: 2006031298

PATIENT
  Sex: Male
  Weight: 90.7194 kg

DRUGS (4)
  1. NORVASC [Suspect]
     Indication: HYPERTENSION
     Dates: start: 19970101, end: 20020101
  2. SYNTHROID [Suspect]
     Indication: ILL-DEFINED DISORDER
  3. CLARITIN [Concomitant]
  4. WELCHOL [Concomitant]

REACTIONS (6)
  - CONDITION AGGRAVATED [None]
  - DRUG TOLERANCE [None]
  - HYPERTENSION [None]
  - STRESS [None]
  - UNEVALUABLE EVENT [None]
  - WEIGHT INCREASED [None]
